FAERS Safety Report 13981658 (Version 1)
Quarter: 2017Q3

REPORT INFORMATION
  Report Type: Spontaneous
  Country: US (occurrence: US)
  Receive Date: 20170918
  Receipt Date: 20170918
  Transmission Date: 20171128
  Serious: No
  Sender: FDA-Public Use
  Company Number: US-BION-005083

PATIENT
  Age: 73 Year
  Sex: Male
  Weight: 62.14 kg

DRUGS (4)
  1. METOPROLOL. [Concomitant]
     Active Substance: METOPROLOL
     Indication: HYPERTENSION
     Dosage: 1 DF QID
  2. VITAMINS NOS [Concomitant]
     Active Substance: VITAMINS
     Dosage: 1 DF QID
  3. CETIRIZINE/CETIRIZINE HYDROCHLORIDE [Suspect]
     Active Substance: CETIRIZINE HYDROCHLORIDE
     Dosage: 1 DF ONCE DAILY
     Route: 048
  4. SIMVASTATIN. [Concomitant]
     Active Substance: SIMVASTATIN

REACTIONS (5)
  - Dry throat [Recovered/Resolved]
  - Incorrect dose administered [Unknown]
  - Mucosal dryness [Recovered/Resolved]
  - Wrong technique in product usage process [Unknown]
  - Dry mouth [Recovered/Resolved]
